FAERS Safety Report 20724043 (Version 1)
Quarter: 2022Q2

REPORT INFORMATION
  Report Type: Other
  Country: CA (occurrence: CA)
  Receive Date: 20220419
  Receipt Date: 20220419
  Transmission Date: 20220721
  Serious: Yes (Other)
  Sender: FDA-Public Use
  Company Number: CA-APOTEX-2022AP006149

PATIENT
  Age: 51 Year
  Sex: Female

DRUGS (14)
  1. METFORMIN [Suspect]
     Active Substance: METFORMIN HYDROCHLORIDE
     Indication: Product used for unknown indication
     Dosage: UNK
     Route: 065
  2. LANREOTIDE [Concomitant]
     Active Substance: LANREOTIDE
     Indication: Acromegaly
     Dosage: 20 MILLIGRAM, QD
     Route: 058
  3. LANREOTIDE [Concomitant]
     Active Substance: LANREOTIDE
     Dosage: 25 INTERNATIONAL UNIT
     Route: 058
  4. LANREOTIDE [Concomitant]
     Active Substance: LANREOTIDE
     Dosage: 15 MILLIGRAM, QD
     Route: 065
  5. LANREOTIDE [Concomitant]
     Active Substance: LANREOTIDE
     Dosage: 20 MILLIGRAM, QD
     Route: 058
  6. LANREOTIDE [Concomitant]
     Active Substance: LANREOTIDE
     Dosage: 25 MILLIGRAM
     Route: 058
  7. LANREOTIDE [Concomitant]
     Active Substance: LANREOTIDE
     Dosage: UNK
     Route: 058
  8. LANREOTIDE [Concomitant]
     Active Substance: LANREOTIDE
     Dosage: 25 MILLIGRAM, QD
     Route: 058
  9. LANREOTIDE [Concomitant]
     Active Substance: LANREOTIDE
     Dosage: 20 MILLIGRAM
     Route: 065
  10. SEMAGLUTIDE [Concomitant]
     Active Substance: SEMAGLUTIDE
     Indication: Product used for unknown indication
     Dosage: UNK
     Route: 065
  11. SYNTHROID [Concomitant]
     Active Substance: LEVOTHYROXINE SODIUM
     Indication: Product used for unknown indication
     Dosage: UNK
     Route: 065
  12. TYLENOL EXTRA STRENGTH [Concomitant]
     Active Substance: ACETAMINOPHEN
     Indication: Product used for unknown indication
     Dosage: UNK
     Route: 065
  13. VAGIFEM [Concomitant]
     Active Substance: ESTRADIOL
     Indication: Product used for unknown indication
     Dosage: UNK
     Route: 065
  14. VITAMIN D3 [Concomitant]
     Active Substance: CHOLECALCIFEROL
     Indication: Product used for unknown indication
     Dosage: UNK
     Route: 065

REACTIONS (3)
  - Diabetes mellitus [Unknown]
  - Abdominal discomfort [Unknown]
  - Headache [Unknown]
